FAERS Safety Report 14315098 (Version 5)
Quarter: 2018Q1

REPORT INFORMATION
  Report Type: Report from Study
  Country: DE (occurrence: DE)
  Receive Date: 20171221
  Receipt Date: 20180322
  Transmission Date: 20180509
  Serious: Yes (Other)
  Sender: FDA-Public Use
  Company Number: DE-TEVA-2017-DE-833969

PATIENT
  Age: 82 Year
  Sex: Female
  Weight: 74 kg

DRUGS (7)
  1. PANITUMUMAB [Suspect]
     Active Substance: PANITUMUMAB
     Indication: COLORECTAL CANCER METASTATIC
     Dosage: 420 MG, UNK
     Route: 042
     Dates: start: 20171012
  2. FOLINIC ACID [Suspect]
     Active Substance: LEUCOVORIN
     Indication: COLORECTAL CANCER METASTATIC
     Dosage: 648-650 MG, UNK
     Route: 065
     Dates: start: 20171012
  3. FLUOROURACIL. [Suspect]
     Active Substance: FLUOROURACIL
     Dosage: 648-650 MG, UNK
     Route: 040
     Dates: start: 20171012
  4. IRINOTECAN [Suspect]
     Active Substance: IRINOTECAN
     Indication: COLORECTAL CANCER METASTATIC
     Dosage: 290 MG, UNK
     Route: 065
     Dates: start: 20171012
  5. IRINOTECAN [Suspect]
     Active Substance: IRINOTECAN
     Indication: OFF LABEL USE
  6. FLUOROURACIL. [Suspect]
     Active Substance: FLUOROURACIL
     Indication: COLORECTAL CANCER METASTATIC
     Dosage: 3890-3900 MG, UNK
     Route: 042
     Dates: start: 20171012
  7. DOXYCYCLIN-RATIOPHARM [Concomitant]
     Indication: PROPHYLAXIS
     Dosage: 200 MILLIGRAM DAILY; 100 MG, BID
     Route: 048
     Dates: start: 20171012

REACTIONS (2)
  - Leukopenia [Recovering/Resolving]
  - Off label use [Unknown]

NARRATIVE: CASE EVENT DATE: 20171026
